FAERS Safety Report 8921825 (Version 2)
Quarter: 2014Q2

REPORT INFORMATION
  Report Type: Spontaneous
  Country: US (occurrence: US)
  Receive Date: 20121121
  Receipt Date: 20131024
  Transmission Date: 20141212
  Serious: No
  Sender: FDA-Public Use
  Company Number: US-PFIZER INC-2012278348

PATIENT
  Age: 59 Year
  Sex: Female
  Weight: 89.8 kg

DRUGS (19)
  1. ENBREL [Suspect]
     Indication: RHEUMATOID ARTHRITIS
     Dosage: 50 MG, QWK
     Dates: start: 20121017
  2. METHOTREXATE SODIUM [Suspect]
     Dosage: UNK
  3. PLAQUENIL [Suspect]
     Dosage: 200 MG, BID
     Route: 048
  4. PREMARIN [Concomitant]
     Dosage: 1.25 MG, QD
     Route: 048
  5. XANAX [Concomitant]
     Dosage: 0.5 MG, TID
  6. NEURONTIN [Concomitant]
     Dosage: 100 MG, TID, ONE TAB AT BED TIME FOR THREE DAYS, TWICE A DAY FOR THREE DAYS, AND THREE TIMES A DAY
     Route: 048
  7. TRILIPIX [Concomitant]
     Dosage: 135 MG, QD
     Route: 048
  8. NORCO [Concomitant]
     Indication: PAIN
     Dosage: 7.5-325 MG, EVERY SIX HOURS AS NEEDED
     Route: 048
  9. DELTASONE [Concomitant]
     Dosage: 10 MG, 10 MG TAB FOR 10 DAYS AND 5MG DAILY
  10. MOBIC [Concomitant]
     Dosage: 15 MG, QD
     Route: 048
  11. RESTORIL [Concomitant]
     Indication: INSOMNIA
     Dosage: 15 MG, PRN
  12. ULTRAM [Concomitant]
     Dosage: 50 MG,EVERY SIX HOURS AS NEEDED
     Route: 048
  13. FOLVITE [Concomitant]
     Dosage: 1 MG, QD
     Route: 048
  14. TENORMIN [Concomitant]
     Dosage: 50 MG, QD
     Route: 048
  15. LOVAZA [Concomitant]
     Dosage: 1 G, BID
     Route: 048
  16. PRILOSEC [Concomitant]
     Dosage: 20 MG, QD
     Route: 048
  17. ALDACTONE [Concomitant]
     Dosage: 50 MG, QD
     Route: 048
  18. WELCHOL [Concomitant]
     Dosage: 625 MG, THREE TABLETS IN MORNING AND THREE TABLETS IN NIGHT
  19. SYNTHROID [Concomitant]
     Dosage: 100 MUG, QD
     Route: 048

REACTIONS (9)
  - Rash erythematous [Not Recovered/Not Resolved]
  - Pain [Not Recovered/Not Resolved]
  - Arthralgia [Recovering/Resolving]
  - Musculoskeletal pain [Recovering/Resolving]
  - Feeling abnormal [Recovering/Resolving]
  - Musculoskeletal stiffness [Recovering/Resolving]
  - Fatigue [Recovering/Resolving]
  - Arthritis [Unknown]
  - Joint swelling [Unknown]
